FAERS Safety Report 9202633 (Version 1)
Quarter: 2013Q2

REPORT INFORMATION
  Report Type: Report from Study
  Country: US (occurrence: US)
  Receive Date: 20130401
  Receipt Date: 20130401
  Transmission Date: 20140414
  Serious: Yes (Other)
  Sender: FDA-Public Use
  Company Number: US-ABBOTT-13P-163-1068800-00

PATIENT
  Age: 37 Year
  Sex: Female

DRUGS (3)
  1. HUMIRA [Suspect]
     Indication: CROHN^S DISEASE
     Route: 058
     Dates: start: 2006, end: 201302
  2. PREDNISONE [Concomitant]
     Indication: PRODUCT USED FOR UNKNOWN INDICATION
     Dates: start: 20130318, end: 20130320
  3. PREDNISONE [Concomitant]
     Dates: start: 20130321

REACTIONS (8)
  - Blindness transient [Unknown]
  - Intestinal resection [Recovering/Resolving]
  - Chest pain [Recovered/Resolved]
  - Blindness [Unknown]
  - Heart rate increased [Unknown]
  - Crohn^s disease [Unknown]
  - Weight decreased [Unknown]
  - Diarrhoea [Unknown]
